FAERS Safety Report 17733758 (Version 1)
Quarter: 2020Q2

REPORT INFORMATION
  Report Type: Spontaneous
  Country: DE (occurrence: DE)
  Receive Date: 20200501
  Receipt Date: 20200501
  Transmission Date: 20200714
  Serious: Yes (Life-Threatening, Hospitalization)
  Sender: FDA-Public Use
  Company Number: NVSC2020DE116885

PATIENT
  Age: 51 Year
  Sex: Male

DRUGS (2)
  1. HUMIRA [Suspect]
     Active Substance: ADALIMUMAB
     Indication: RHEUMATOID ARTHRITIS
     Dosage: 40 MG
     Route: 058
     Dates: start: 201807, end: 201812
  2. HYRIMOZ [Suspect]
     Active Substance: ADALIMUMAB-ADAZ
     Indication: PRODUCT USED FOR UNKNOWN INDICATION
     Dosage: 40 MG
     Route: 058
     Dates: end: 201812

REACTIONS (5)
  - Arthralgia [Unknown]
  - Gastroenteritis viral [Unknown]
  - Restless legs syndrome [Unknown]
  - Mitral valve incompetence [Unknown]
  - Stress at work [Unknown]

NARRATIVE: CASE EVENT DATE: 201902
